FAERS Safety Report 6790245-8 (Version None)
Quarter: 2010Q2

REPORT INFORMATION
  Report Type: 
  Country: None (occurrence: None)
  Receive Date: 20100624
  Receipt Date: 20100616
  Transmission Date: 20101027
  Serious: Yes (Other)
  Sender: FDA-Public Use
  Company Number: US-BAYER-201016906BCC

PATIENT
  Age: 62 Year
  Sex: Female
  Weight: 58 kg

DRUGS (13)
  1. ASPIRIN [Suspect]
     Indication: ISCHAEMIC HEART DISEASE PROPHYLAXIS
     Dosage: TOTAL DAILY DOSE: 81 MG  UNIT DOSE: 81 MG
     Route: 048
     Dates: start: 20100501
  2. OXYGEN [Concomitant]
  3. NEXIUM [Concomitant]
  4. DIAVAN [Concomitant]
  5. PREMARIN [Concomitant]
  6. POTASSIUM [Concomitant]
  7. ALPRAZOLAM [Concomitant]
  8. FUROSEMIDE [Concomitant]
  9. PROMETHAZINE [Concomitant]
  10. SOMA [Concomitant]
  11. DIPHENOXYLATE HCL + ATROPINE SULFATE [Concomitant]
  12. PROAIR HFA [Concomitant]
  13. HYDROCODONE [Concomitant]

REACTIONS (6)
  - ABDOMINAL DISTENSION [None]
  - CHEST DISCOMFORT [None]
  - CHOKING SENSATION [None]
  - HYPERSENSITIVITY [None]
  - PRURITUS [None]
  - URTICARIA [None]
